FAERS Safety Report 4639823-2 (Version None)
Quarter: 2005Q2

REPORT INFORMATION
  Report Type: 
  Country: None (occurrence: None)
  Receive Date: 20050415
  Receipt Date: 20050329
  Transmission Date: 20051028
  Serious: Yes (Death)
  Sender: FDA-Public Use
  Company Number: A02200500846

PATIENT
  Age: 21 Year
  Sex: Male

DRUGS (4)
  1. STILNOX - (ZOLPIDEM) - TABLET - 10 MG [Suspect]
     Indication: SCHIZOPHRENIA
     Dosage: 10 MG OD
     Route: 048
     Dates: start: 20040521
  2. RISPERDAL [Suspect]
     Dosage: 8 MG QD : 27 WEEKS 4 DAYS
     Route: 048
     Dates: start: 20040521
  3. LYSANXA - (PRAZEPAM) - TABLET - 10 MG [Suspect]
     Dosage: 10 MG QD; 27 WEEKS 4 DAYS
     Route: 048
     Dates: start: 20040521
  4. ZYPREXA [Concomitant]

REACTIONS (2)
  - COMPLETED SUICIDE [None]
  - GASTROINTESTINAL HAEMORRHAGE [None]
